FAERS Safety Report 8885862 (Version 8)
Quarter: 2014Q4

REPORT INFORMATION
  Report Type: Report from Study
  Country: FR (occurrence: FR)
  Receive Date: 20121102
  Receipt Date: 20141015
  Transmission Date: 20150529
  Serious: Yes (Other)
  Sender: FDA-Public Use
  Company Number: FR-MILLENNIUM PHARMACEUTICALS, INC.-2012-07370

PATIENT

DRUGS (12)
  1. BACTRIM [Concomitant]
     Active Substance: SULFAMETHOXAZOLE\TRIMETHOPRIM
  2. ARANESP [Concomitant]
     Active Substance: DARBEPOETIN ALFA
  3. OROCAL                             /00108001/ [Concomitant]
  4. FUROSEMIDE. [Concomitant]
     Active Substance: FUROSEMIDE
  5. DEXAMETHASONE. [Suspect]
     Active Substance: DEXAMETHASONE
     Indication: PLASMA CELL MYELOMA
     Dosage: 20 MG, UNK
     Route: 048
     Dates: start: 2011, end: 20120414
  6. ZELITREX                           /01269701/ [Concomitant]
     Active Substance: VALACYCLOVIR HYDROCHLORIDE
  7. VELCADE [Suspect]
     Active Substance: BORTEZOMIB
     Indication: PLASMA CELL MYELOMA
     Dosage: 1.3 MG, UNK
     Route: 042
     Dates: start: 2011, end: 20120413
  8. NITRIDERM [Concomitant]
     Active Substance: NITROGLYCERIN
  9. KARDEGIC [Concomitant]
     Active Substance: ASPIRIN LYSINE
  10. NATISPRAY [Concomitant]
     Active Substance: NITROGLYCERIN
  11. MOPRAL                             /00661201/ [Concomitant]
     Active Substance: OMEPRAZOLE SODIUM
  12. UVEDOSE [Concomitant]
     Active Substance: CHOLECALCIFEROL

REACTIONS (4)
  - Progressive multifocal leukoencephalopathy [Unknown]
  - Lung disorder [Recovering/Resolving]
  - Emphysema [Recovered/Resolved]
  - Pulmonary fibrosis [Recovered/Resolved with Sequelae]

NARRATIVE: CASE EVENT DATE: 20120427
